FAERS Safety Report 24164327 (Version 1)
Quarter: 2024Q3

REPORT INFORMATION
  Report Type: Spontaneous
  Country: US (occurrence: US)
  Receive Date: 20240801
  Receipt Date: 20240801
  Transmission Date: 20241016
  Serious: No
  Sender: ABBVIE
  Company Number: US-ABBVIE-5862680

PATIENT
  Age: 47 Year
  Sex: Female
  Weight: 63 kg

DRUGS (12)
  1. BOTOX [Suspect]
     Active Substance: ONABOTULINUMTOXINA
     Indication: Migraine
     Dosage: TIME INTERVAL: AS NECESSARY: EVERY THREE MONTHS?FORM STRENGTH: 180 UNIT
     Route: 030
     Dates: start: 2009, end: 2009
  2. PLAQUENIL [Concomitant]
     Active Substance: HYDROXYCHLOROQUINE SULFATE
     Indication: Systemic lupus erythematosus
  3. CYMBALTA [Concomitant]
     Active Substance: DULOXETINE HYDROCHLORIDE
     Indication: Systemic lupus erythematosus
  4. ZYRTEC [Concomitant]
     Active Substance: CETIRIZINE HYDROCHLORIDE
     Indication: Hypersensitivity
  5. SYNTHROID [Concomitant]
     Active Substance: LEVOTHYROXINE SODIUM
     Indication: Hypothyroidism
  6. DULOXETINE [Concomitant]
     Active Substance: DULOXETINE
     Indication: Systemic lupus erythematosus
  7. PREDNISONE [Concomitant]
     Active Substance: PREDNISONE
     Indication: Migraine
     Dosage: AS-NEEDED
  8. HIPREX [Concomitant]
     Active Substance: METHENAMINE HIPPURATE
     Indication: Systemic lupus erythematosus
  9. MOBIC [Concomitant]
     Active Substance: MELOXICAM
     Indication: Systemic lupus erythematosus
  10. TESTOSTERONE [Concomitant]
     Active Substance: TESTOSTERONE
     Indication: Product used for unknown indication
     Dosage: SHOT
  11. PROPRANOLOL HYDROCHLORIDE [Concomitant]
     Active Substance: PROPRANOLOL HYDROCHLORIDE
     Indication: Migraine
  12. SPIRONOLACTONE [Concomitant]
     Active Substance: SPIRONOLACTONE
     Indication: Acne

REACTIONS (2)
  - Migraine [Not Recovered/Not Resolved]
  - Drug ineffective [Not Recovered/Not Resolved]

NARRATIVE: CASE EVENT DATE: 20240601
